FAERS Safety Report 8570776-0 (Version None)
Quarter: 2012Q3

REPORT INFORMATION
  Report Type: 
  Country: None (occurrence: None)
  Receive Date: 20120806
  Receipt Date: 20120801
  Transmission Date: 20120928
  Serious: Yes (Hospitalization)
  Sender: FDA-Public Use
  Company Number: AU-AMGEN-AUSSP2012048263

PATIENT
  Sex: Male

DRUGS (1)
  1. XGEVA [Suspect]
     Indication: PROSTATE CANCER

REACTIONS (1)
  - CELLULITIS [None]
